FAERS Safety Report 6607154-7 (Version None)
Quarter: 2010Q1

REPORT INFORMATION
  Report Type: 
  Country: None (occurrence: None)
  Receive Date: 20100212
  Receipt Date: 20091020
  Transmission Date: 20100710
  Serious: No
  Sender: FDA-Public Use
  Company Number: 1000009579

PATIENT
  Sex: Male

DRUGS (4)
  1. SAVELLA [Suspect]
     Dosage: 12.5 MG (12.5 MG, 1 IN 1 D); 25; 50 MG (12.5; 25 MG, 2 IN 1 D) ORAL
     Route: 048
     Dates: start: 20090930, end: 20090930
  2. SAVELLA [Suspect]
     Dosage: 12.5 MG (12.5 MG, 1 IN 1 D); 25; 50 MG (12.5; 25 MG, 2 IN 1 D) ORAL
     Route: 048
     Dates: start: 20091001, end: 20091002
  3. SAVELLA [Suspect]
     Dosage: 12.5 MG (12.5 MG, 1 IN 1 D); 25; 50 MG (12.5; 25 MG, 2 IN 1 D) ORAL
     Route: 048
     Dates: start: 20091003, end: 20091006
  4. SAVELLA [Suspect]
     Dosage: 100 MG (50 MG, 2 IN 1 D), ORAL
     Route: 048
     Dates: start: 20091007, end: 20091010

REACTIONS (1)
  - INSOMNIA [None]
